FAERS Safety Report 23035328 (Version 5)
Quarter: 2024Q1

REPORT INFORMATION
  Report Type: Report from Study
  Country: US (occurrence: US)
  Receive Date: 20231005
  Receipt Date: 20240215
  Transmission Date: 20240410
  Serious: Yes (Hospitalization, Other)
  Sender: FDA-Public Use
  Company Number: US-ABBVIE-5435758

PATIENT
  Sex: Male

DRUGS (4)
  1. VENCLEXTA [Suspect]
     Active Substance: VENETOCLAX
     Indication: Acute myeloid leukaemia
     Dosage: DAY 1, FORM STRENGTH: 100 MILLIGRAM,
     Route: 048
     Dates: start: 20230927, end: 20230927
  2. VENCLEXTA [Suspect]
     Active Substance: VENETOCLAX
     Indication: Acute myeloid leukaemia
     Dosage: TAKE 2 TABLETS BY MOUTH DAY 2, FORM STRENGTH: 100 MILLIGRAM,
     Route: 048
     Dates: start: 20230928, end: 20230928
  3. VENCLEXTA [Suspect]
     Active Substance: VENETOCLAX
     Indication: Acute myeloid leukaemia
     Dosage: TAKE 3 TABLETS BY MOUTH DAY 3, FORM STRENGTH: 100 MILLIGRAM,
     Route: 048
     Dates: start: 20230929, end: 20230929
  4. VENCLEXTA [Suspect]
     Active Substance: VENETOCLAX
     Indication: Acute myeloid leukaemia
     Dosage: TAKE 4 TABLETS BY MOUTH DAY 4 AND EVERYDAY THEREAFTER, ?FORM STRENGTH: 100 MILLIGRAM
     Route: 048
     Dates: start: 20230930, end: 20231114

REACTIONS (24)
  - Anaemia [Recovering/Resolving]
  - Dry eye [Unknown]
  - Pain in jaw [Not Recovered/Not Resolved]
  - Asthenia [Not Recovered/Not Resolved]
  - Eye pruritus [Unknown]
  - Hallucination [Unknown]
  - White blood cell count abnormal [Not Recovered/Not Resolved]
  - Gingival bleeding [Unknown]
  - Laryngitis [Not Recovered/Not Resolved]
  - Pneumonia [Not Recovered/Not Resolved]
  - Neutropenia [Recovering/Resolving]
  - Night sweats [Not Recovered/Not Resolved]
  - Neutrophil count decreased [Not Recovered/Not Resolved]
  - Dysphagia [Not Recovered/Not Resolved]
  - Fatigue [Not Recovered/Not Resolved]
  - Weight decreased [Not Recovered/Not Resolved]
  - Musculoskeletal pain [Not Recovered/Not Resolved]
  - Bone pain [Not Recovered/Not Resolved]
  - Insomnia [Not Recovered/Not Resolved]
  - Oxygen saturation decreased [Not Recovered/Not Resolved]
  - Thrombocytopenia [Recovering/Resolving]
  - Chills [Not Recovered/Not Resolved]
  - White blood cell count abnormal [Not Recovered/Not Resolved]
  - White blood cell count decreased [Not Recovered/Not Resolved]

NARRATIVE: CASE EVENT DATE: 20230101
